FAERS Safety Report 9691090 (Version 2)
Quarter: 2013Q4

REPORT INFORMATION
  Report Type: Spontaneous
  Country: FR (occurrence: FR)
  Receive Date: 20131115
  Receipt Date: 20131205
  Transmission Date: 20140711
  Serious: Yes (Hospitalization)
  Sender: FDA-Public Use
  Company Number: FR-SA-2013SA117386

PATIENT
  Age: 86 Year
  Sex: Male

DRUGS (6)
  1. ORELOX [Suspect]
     Indication: BRONCHITIS
     Route: 048
     Dates: start: 20130701
  2. LASILIX [Interacting]
     Indication: DYSPNOEA
     Route: 048
     Dates: start: 20130701
  3. HELICIDINE [Interacting]
     Indication: BRONCHITIS
     Route: 048
     Dates: start: 20130701, end: 20130703
  4. PREVISCAN [Interacting]
     Indication: ATRIAL FIBRILLATION
     Route: 048
     Dates: start: 2010, end: 20130703
  5. PREVISCAN [Interacting]
     Indication: ATRIAL FIBRILLATION
  6. DAFALGAN [Interacting]
     Indication: BRONCHITIS
     Dosage: 2 TO 6 DF DAILY
     Route: 048
     Dates: start: 20130701, end: 20130703

REACTIONS (2)
  - International normalised ratio increased [Recovered/Resolved]
  - Drug interaction [Unknown]
